FAERS Safety Report 7220113-9 (Version None)
Quarter: 2011Q1

REPORT INFORMATION
  Report Type: 
  Country: None (occurrence: None)
  Receive Date: 20110111
  Receipt Date: 20060512
  Transmission Date: 20110831
  Serious: Yes (Other)
  Sender: FDA-Public Use
  Company Number: B0692989A

PATIENT

DRUGS (1)
  1. DILATREND [Suspect]
     Dosage: 25MG TWICE PER DAY
     Route: 065

REACTIONS (1)
  - RENAL FAILURE [None]
